FAERS Safety Report 7236533-2 (Version None)
Quarter: 2011Q1

REPORT INFORMATION
  Report Type: 
  Country: None (occurrence: None)
  Receive Date: 20110112
  Receipt Date: 20110103
  Transmission Date: 20110831
  Serious: Yes (Death, Other)
  Sender: FDA-Public Use
  Company Number: 2009-03471

PATIENT
  Age: 58 Year
  Sex: Female
  Weight: 96 kg

DRUGS (18)
  1. THALIDOMIDE [Concomitant]
  2. ACYCLOVIR [Concomitant]
  3. CALCIFEROL (ERGOCALCIFEROL) [Concomitant]
  4. VELCADE [Suspect]
     Indication: MULTIPLE MYELOMA
     Dosage: 2.5 MG,
  5. VELCADE [Suspect]
  6. IDARUBICIN (IDARUBICIN) [Concomitant]
  7. ENOXAPARIN SODIUM [Concomitant]
  8. FERROGRADUMET (FERROUS SULFATE) [Concomitant]
  9. NOVOLOG [Concomitant]
  10. AMITRIPTYLINE HYDROCHLORIDE [Concomitant]
  11. PAMIDRONATE DISODIUM [Concomitant]
  12. DEXAMETHASONE [Concomitant]
  13. ONDANSETRON [Concomitant]
  14. FUROSEMIDE [Concomitant]
  15. METFORMIN (METFORMIN) [Concomitant]
  16. OMEPRAZOLE [Concomitant]
  17. EZETIMIBE [Concomitant]
  18. CILAZAPRIL (CILAZAPRIL) [Concomitant]

REACTIONS (6)
  - DRUG INEFFECTIVE [None]
  - MULTIPLE MYELOMA [None]
  - DISEASE PROGRESSION [None]
  - RENAL FAILURE ACUTE [None]
  - FEMUR FRACTURE [None]
  - PANCYTOPENIA [None]
